FAERS Safety Report 16258173 (Version 3)
Quarter: 2019Q3

REPORT INFORMATION
  Report Type: Spontaneous
  Country: US (occurrence: US)
  Receive Date: 20190430
  Receipt Date: 20190719
  Transmission Date: 20191004
  Serious: Yes (Other)
  Sender: FDA-Public Use
  Company Number: US-ASTRAZENECA-2019SE09416

PATIENT
  Sex: Female

DRUGS (9)
  1. NEXIUM [Suspect]
     Active Substance: ESOMEPRAZOLE MAGNESIUM
     Dosage: FOR VARIOUS DATES AND YEARS PRIOR TO AND/OR INCLUDING THE DATES OF PLAINTIFF^S INJURY OR INJURIES
     Route: 048
  2. FUROSEMIDE. [Concomitant]
     Active Substance: FUROSEMIDE
  3. FISH OIL [Concomitant]
     Active Substance: FISH OIL
  4. ALKA-SELTZER [Concomitant]
     Active Substance: ANHYDROUS CITRIC ACID\ASPIRIN\SODIUM BICARBONATE
  5. LISINOPRIL. [Concomitant]
     Active Substance: LISINOPRIL
  6. FOLIC ACID. [Concomitant]
     Active Substance: FOLIC ACID
  7. PEPCID AC [Concomitant]
     Active Substance: FAMOTIDINE
  8. PREVACID 24 HR [Suspect]
     Active Substance: LANSOPRAZOLE
     Route: 065
  9. CLONIDINE. [Concomitant]
     Active Substance: CLONIDINE

REACTIONS (5)
  - Renal injury [Unknown]
  - Renal failure [Unknown]
  - Nephrogenic anaemia [Unknown]
  - Rebound acid hypersecretion [Unknown]
  - Chronic kidney disease [Not Recovered/Not Resolved]
